FAERS Safety Report 16088782 (Version 5)
Quarter: 2019Q3

REPORT INFORMATION
  Report Type: Spontaneous
  Country: US (occurrence: US)
  Receive Date: 20190319
  Receipt Date: 20190722
  Transmission Date: 20191004
  Serious: Yes (Other)
  Sender: FDA-Public Use
  Company Number: US-BIOGEN-2019BI00694587

PATIENT
  Sex: Female

DRUGS (3)
  1. TECFIDERA [Suspect]
     Active Substance: DIMETHYL FUMARATE
     Route: 065
  2. TECFIDERA [Suspect]
     Active Substance: DIMETHYL FUMARATE
     Indication: MULTIPLE SCLEROSIS
     Route: 050
     Dates: start: 20190205
  3. TECFIDERA [Suspect]
     Active Substance: DIMETHYL FUMARATE
     Route: 050
     Dates: start: 20190201

REACTIONS (17)
  - Hallucination [Recovered/Resolved]
  - Drug ineffective [Not Recovered/Not Resolved]
  - Complication associated with device [Unknown]
  - Product dose omission [Unknown]
  - Bone pain [Not Recovered/Not Resolved]
  - Fatigue [Recovered/Resolved]
  - Immune system disorder [Unknown]
  - Diabetes mellitus [Not Recovered/Not Resolved]
  - Decreased appetite [Unknown]
  - Arthralgia [Not Recovered/Not Resolved]
  - Pain [Unknown]
  - Sinusitis [Not Recovered/Not Resolved]
  - Nausea [Unknown]
  - Malaise [Not Recovered/Not Resolved]
  - Myalgia [Not Recovered/Not Resolved]
  - Euphoric mood [Recovered/Resolved]
  - Vomiting [Not Recovered/Not Resolved]
